FAERS Safety Report 17157449 (Version 2)
Quarter: 2020Q1

REPORT INFORMATION
  Report Type: Spontaneous
  Country: FR (occurrence: FR)
  Receive Date: 20191216
  Receipt Date: 20200110
  Transmission Date: 20200409
  Serious: Yes (Death, Other)
  Sender: FDA-Public Use
  Company Number: FR-AMGEN-FRASP2019206837

PATIENT
  Age: 72 Year
  Sex: Female
  Weight: 69 kg

DRUGS (1)
  1. BLINCYTO [Suspect]
     Active Substance: BLINATUMOMAB
     Indication: PRECURSOR B-LYMPHOBLASTIC LYMPHOMA RECURRENT
     Dosage: UNK
     Route: 042
     Dates: start: 20191028

REACTIONS (3)
  - Escherichia bacteraemia [Unknown]
  - Septic shock [Fatal]
  - Multiple organ dysfunction syndrome [Unknown]

NARRATIVE: CASE EVENT DATE: 20191028
